FAERS Safety Report 15318487 (Version 2)
Quarter: 2019Q1

REPORT INFORMATION
  Report Type: Report from Study
  Country: US (occurrence: US)
  Receive Date: 20180825
  Receipt Date: 20190129
  Transmission Date: 20190417
  Serious: Yes (Other)
  Sender: FDA-Public Use
  Company Number: PHHY2018US080872

PATIENT
  Age: 52 Year
  Sex: Female

DRUGS (1)
  1. GILENYA [Suspect]
     Active Substance: FINGOLIMOD HYDROCHLORIDE
     Indication: MULTIPLE SCLEROSIS
     Dosage: UNK, QD
     Route: 048

REACTIONS (4)
  - Vitreous adhesions [Unknown]
  - Sinus bradycardia [Recovered/Resolved]
  - Dyspnoea exertional [Unknown]
  - Macular oedema [Recovered/Resolved]

NARRATIVE: CASE EVENT DATE: 20180226
